FAERS Safety Report 12308982 (Version 1)
Quarter: 2016Q2

REPORT INFORMATION
  Report Type: Spontaneous
  Country: FI (occurrence: FI)
  Receive Date: 20160427
  Receipt Date: 20160427
  Transmission Date: 20160815
  Serious: Yes (Disabling)
  Sender: FDA-Public Use
  Company Number: FI-SUN PHARMACEUTICAL INDUSTRIES LTD-2016RR-115413

PATIENT
  Age: 66 Year
  Sex: Female

DRUGS (3)
  1. ATORVASTATIN ORION [Suspect]
     Active Substance: ATORVASTATIN CALCIUM
     Indication: HYPERCHOLESTEROLAEMIA
     Dosage: 20 MG, DAILY
     Route: 048
     Dates: start: 20160312, end: 20160319
  2. BISOPROLOL RATIOPHARM [Concomitant]
     Active Substance: BISOPROLOL
     Indication: CARDIAC DISORDER
     Dosage: 5 MG, DAILY
     Route: 048
     Dates: start: 20040101
  3. PRIMASPAN [Concomitant]
     Active Substance: ASPIRIN
     Indication: COLLATERAL CIRCULATION
     Dosage: 100 MG, DAILY
     Route: 048
     Dates: start: 20040101

REACTIONS (2)
  - Headache [Recovered/Resolved]
  - Dizziness [Recovered/Resolved]

NARRATIVE: CASE EVENT DATE: 20160315
